FAERS Safety Report 7310272-1 (Version None)
Quarter: 2011Q1

REPORT INFORMATION
  Report Type: 
  Country: None (occurrence: None)
  Receive Date: 20110224
  Receipt Date: 20110216
  Transmission Date: 20110831
  Serious: Yes (Hospitalization, Other)
  Sender: FDA-Public Use
  Company Number: US-US-EMD SERONO, INC.-7024608

PATIENT
  Sex: Female

DRUGS (1)
  1. REBIF [Suspect]
     Indication: MULTIPLE SCLEROSIS
     Route: 058
     Dates: start: 20100614

REACTIONS (10)
  - INTRACARDIAC THROMBUS [None]
  - THROMBOSIS [None]
  - SEPSIS [None]
  - URINARY TRACT INFECTION [None]
  - MULTIPLE SCLEROSIS RELAPSE [None]
  - SPEECH DISORDER [None]
  - MOBILITY DECREASED [None]
  - SKIN ULCER [None]
  - PULMONARY EMBOLISM [None]
  - SLEEP DISORDER [None]
